FAERS Safety Report 17442691 (Version 2)
Quarter: 2020Q2

REPORT INFORMATION
  Report Type: Spontaneous
  Country: US (occurrence: US)
  Receive Date: 20200220
  Receipt Date: 20200407
  Transmission Date: 20200713
  Serious: No
  Sender: FDA-Public Use
  Company Number: US-AMGEN INC.-USASP2020028627

PATIENT

DRUGS (2)
  1. AIMOVIG [Suspect]
     Active Substance: ERENUMAB-AOOE
     Dosage: 140 MILLIGRAM (THREE MONTHS)
     Route: 065
  2. AIMOVIG [Suspect]
     Active Substance: ERENUMAB-AOOE
     Indication: MIGRAINE
     Dosage: 70 MILLIGRAM (THREE MONTHS)
     Route: 065

REACTIONS (6)
  - Drug ineffective [Unknown]
  - Adverse event [Unknown]
  - Migraine [Unknown]
  - Drug hypersensitivity [Unknown]
  - Ill-defined disorder [Unknown]
  - Feeling abnormal [Unknown]
